FAERS Safety Report 7493097-6 (Version None)
Quarter: 2011Q2

REPORT INFORMATION
  Report Type: 
  Country: None (occurrence: None)
  Receive Date: 20110520
  Receipt Date: 20110517
  Transmission Date: 20111010
  Serious: Yes (Death)
  Sender: FDA-Public Use
  Company Number: PHHY2011CZ41683

PATIENT
  Sex: Female

DRUGS (2)
  1. ANODYNES [Concomitant]
  2. ZOMETA [Suspect]
     Indication: METASTASES TO BONE
     Dosage: UNK
     Dates: start: 20080121

REACTIONS (1)
  - DEATH [None]
